FAERS Safety Report 14112715 (Version 2)
Quarter: 2018Q1

REPORT INFORMATION
  Report Type: Spontaneous
  Country: US (occurrence: US)
  Receive Date: 20171021
  Receipt Date: 20180123
  Transmission Date: 20180508
  Serious: No
  Sender: FDA-Public Use
  Company Number: US-TEVA-816204ACC

PATIENT
  Sex: Female
  Weight: 85.81 kg

DRUGS (1)
  1. PARAGARD T 380A [Suspect]
     Active Substance: COPPER
     Indication: CONTRACEPTION
     Route: 065
     Dates: start: 2009

REACTIONS (4)
  - Device breakage [Recovered/Resolved]
  - Discomfort [Unknown]
  - Pain [Unknown]
  - Vaginal haemorrhage [Unknown]
